FAERS Safety Report 8163824-3 (Version None)
Quarter: 2012Q1

REPORT INFORMATION
  Report Type: 
  Country: None (occurrence: None)
  Receive Date: 20120221
  Receipt Date: 20120205
  Transmission Date: 20120608
  Serious: Yes (Other)
  Sender: FDA-Public Use
  Company Number: GB-DEXPHARM-20120039

PATIENT
  Age: 51 Year
  Sex: Male

DRUGS (5)
  1. OMEPRAZOLE [Suspect]
     Dosage: ORAL
     Route: 048
     Dates: start: 19920101, end: 20120124
  2. ALGINIC ACID [Concomitant]
  3. BUDESONIDE [Concomitant]
  4. CO-DYDRAMOL [Concomitant]
  5. VENTOLIN [Concomitant]

REACTIONS (1)
  - HEADACHE [None]
